FAERS Safety Report 9467602 (Version 1)
Quarter: 2013Q3

REPORT INFORMATION
  Report Type: Spontaneous
  Country: US (occurrence: None)
  Receive Date: 20130819
  Receipt Date: 20130819
  Transmission Date: 20140515
  Serious: Yes (Hospitalization)
  Sender: FDA-Public Use
  Company Number: None

PATIENT
  Age: 41 Year
  Sex: Female
  Weight: 72.58 kg

DRUGS (1)
  1. ABILIFY [Suspect]
     Indication: LIGAMENT SPRAIN
     Dosage: ONCE DAILY  TAKEN BY MOUTH
     Route: 048

REACTIONS (4)
  - Vomiting [None]
  - Confusional state [None]
  - Photosensitivity reaction [None]
  - Tremor [None]
